FAERS Safety Report 15038286 (Version 2)
Quarter: 2018Q2

REPORT INFORMATION
  Report Type: Spontaneous
  Country: CN (occurrence: CN)
  Receive Date: 20180620
  Receipt Date: 20180627
  Transmission Date: 20180711
  Serious: Yes (Death, Other)
  Sender: FDA-Public Use
  Company Number: CN-IMPAX LABORATORIES, INC-2018-IPXL-02104

PATIENT
  Age: 66 Year
  Sex: Male

DRUGS (17)
  1. DEXAMETHASONE. [Suspect]
     Active Substance: DEXAMETHASONE
     Dosage: 15 MG, UNK, DAY 1-4
     Route: 065
     Dates: start: 20130417, end: 201304
  2. EPIRUBICIN HYDROCHLORIDE. [Suspect]
     Active Substance: EPIRUBICIN HYDROCHLORIDE
     Indication: PLASMA CELL MYELOMA
     Dosage: 15 MG, UNK, DAY 1-4
     Route: 065
     Dates: start: 20120106, end: 201201
  3. EPIRUBICIN HYDROCHLORIDE. [Suspect]
     Active Substance: EPIRUBICIN HYDROCHLORIDE
     Indication: PRODUCT USE IN UNAPPROVED INDICATION
     Dosage: 15 MG, UNK, DAY 1-4
     Route: 065
     Dates: start: 20130108, end: 201301
  4. THALIDOMIDE [Suspect]
     Active Substance: THALIDOMIDE
     Dosage: 100 MG, DAILY
     Route: 065
     Dates: start: 20130417, end: 201304
  5. CYCLOPHOSPHAMIDE. [Suspect]
     Active Substance: CYCLOPHOSPHAMIDE
     Indication: PLASMA CELL MYELOMA
     Dosage: 0.2 MG, UNK, DAY 1-2
     Route: 065
     Dates: start: 20120727, end: 201207
  6. DEXAMETHASONE. [Suspect]
     Active Substance: DEXAMETHASONE
     Dosage: 20 MG, UNK, DAY 1-4, DAY 9-12
     Route: 065
     Dates: start: 201207, end: 201207
  7. DEXAMETHASONE. [Suspect]
     Active Substance: DEXAMETHASONE
     Dosage: 20 MG, UNK, DAY 1-4, DAY 8-11
     Route: 065
     Dates: start: 20130108, end: 201301
  8. BENDAMUSTINE [Suspect]
     Active Substance: BENDAMUSTINE
     Dosage: 150 MG, UNK, DAY 1-2
     Route: 065
     Dates: start: 20130417, end: 201304
  9. DEXAMETHASONE. [Suspect]
     Active Substance: DEXAMETHASONE
     Indication: PLASMA CELL MYELOMA
     Dosage: 40 MG, UNK, DAY1-4, DAY 9-12, DAY 17-20
     Route: 065
     Dates: start: 20120106, end: 201201
  10. BENDAMUSTINE [Suspect]
     Active Substance: BENDAMUSTINE
     Indication: PLASMA CELL MYELOMA
     Dosage: 150 MG, UNK, DAY 1-2
     Route: 065
     Dates: start: 20130304, end: 201303
  11. THALIDOMIDE [Suspect]
     Active Substance: THALIDOMIDE
     Indication: PLASMA CELL MYELOMA
     Dosage: 50 MG,
     Route: 065
     Dates: start: 20120727, end: 201207
  12. THALIDOMIDE [Suspect]
     Active Substance: THALIDOMIDE
     Dosage: 100 MG, DAILY
     Route: 065
     Dates: start: 20130304, end: 201303
  13. DEXAMETHASONE. [Suspect]
     Active Substance: DEXAMETHASONE
     Dosage: 15 MG, UNK, DAY 1-4
     Route: 065
     Dates: start: 20130304, end: 201303
  14. VINDESINE [Suspect]
     Active Substance: VINDESINE
     Indication: PLASMA CELL MYELOMA
     Dosage: 1 MG, UNK, DAY 1-4
     Route: 065
     Dates: start: 20120106, end: 201201
  15. THALIDOMIDE [Suspect]
     Active Substance: THALIDOMIDE
     Dosage: 100 MG, DAILY
     Route: 065
     Dates: start: 20130108, end: 201301
  16. DEXAMETHASONE. [Suspect]
     Active Substance: DEXAMETHASONE
     Dosage: 20 MG, UNK, DAY 1-2, DAY 4-5, DAY 8-9, DAY 11-12
     Route: 065
     Dates: start: 201207, end: 201207
  17. BORTEZOMIB [Suspect]
     Active Substance: BORTEZOMIB
     Indication: PLASMA CELL MYELOMA
     Dosage: 1.75 MG, UNK, DAY 1, DAY 4,DAY 8, DAY11
     Route: 065
     Dates: start: 20120727, end: 201207

REACTIONS (4)
  - Pleural effusion [Unknown]
  - Product use in unapproved indication [Unknown]
  - Plasma cell myeloma [Fatal]
  - Alpha 1 foetoprotein increased [Unknown]
